FAERS Safety Report 9043525 (Version 1)
Quarter: 2013Q1

REPORT INFORMATION
  Report Type: Report from Study
  Country: US (occurrence: US)
  Receive Date: 20130129
  Receipt Date: 20130129
  Transmission Date: 20140127
  Serious: No
  Sender: FDA-Public Use
  Company Number: US-ABBOTT-12P-163-0909448-00

PATIENT
  Age: 54 Year
  Sex: Female

DRUGS (11)
  1. HUMIRA 40 MG/0.8 ML PEN [Suspect]
     Indication: CROHN^S DISEASE
     Dates: start: 20110829
  2. ALLOPURINOL [Concomitant]
     Indication: HYPERTENSION
  3. CITALOPRAM [Concomitant]
     Indication: DEPRESSION
  4. RANITIDINE HCL [Concomitant]
     Indication: DYSPEPSIA
  5. IMODIUM [Concomitant]
     Indication: DIARRHOEA
     Dosage: 2 MG TO 30 MG
  6. IMODIUM [Concomitant]
     Indication: CROHN^S DISEASE
  7. METHOCARBAMOL [Concomitant]
     Indication: MUSCLE RELAXANT THERAPY
  8. VITAMIN B12 [Concomitant]
     Indication: VITAMIN B COMPLEX DEFICIENCY
  9. VITAMIN D [Concomitant]
     Indication: CROHN^S DISEASE
  10. HYDROCODONE [Concomitant]
     Indication: PAIN
     Dosage: 5/500 MG 1-2 TABS
  11. HYDROCODONE [Concomitant]
     Indication: CROHN^S DISEASE

REACTIONS (4)
  - Influenza [Recovering/Resolving]
  - Respiratory tract congestion [Not Recovered/Not Resolved]
  - Upper respiratory tract congestion [Not Recovered/Not Resolved]
  - Cough [Not Recovered/Not Resolved]
